FAERS Safety Report 8614028-9 (Version None)
Quarter: 2012Q3

REPORT INFORMATION
  Report Type: 
  Country: None (occurrence: None)
  Receive Date: 20120823
  Receipt Date: 20120810
  Transmission Date: 20120928
  Serious: Yes (Hospitalization, Other)
  Sender: FDA-Public Use
  Company Number: US-009507513-1111USA03483

PATIENT

DRUGS (21)
  1. RED YEAST [Concomitant]
     Route: 048
     Dates: start: 19950101, end: 20090101
  2. MEGA [Concomitant]
     Route: 048
     Dates: start: 19950101, end: 20090101
  3. VITAMIN B COMPLEX CAP [Concomitant]
     Route: 048
     Dates: start: 19950101, end: 20090101
  4. VALTREX [Concomitant]
     Indication: HERPES SIMPLEX
     Dates: start: 20000101
  5. TOPROL-XL [Concomitant]
     Indication: HYPERTENSION
     Route: 048
     Dates: start: 20000101
  6. FOSAMAX [Suspect]
     Indication: OSTEOPENIA
     Dosage: 70 MG, QW
     Route: 048
     Dates: start: 20020601, end: 20050401
  7. MK-9278 [Concomitant]
     Route: 048
     Dates: start: 19950101, end: 20090101
  8. HORSE CHESTNUT [Concomitant]
     Route: 048
     Dates: start: 19950101, end: 20090101
  9. FLAXSEED [Concomitant]
     Route: 048
     Dates: start: 19950101, end: 20090101
  10. LIPITOR [Concomitant]
     Indication: BLOOD CHOLESTEROL INCREASED
     Route: 048
     Dates: start: 20000101
  11. TRILIPIX [Concomitant]
     Indication: BLOOD CHOLESTEROL INCREASED
     Route: 048
     Dates: start: 20000101
  12. ARTICHOKE [Concomitant]
     Route: 048
     Dates: start: 19950101, end: 20090101
  13. VITAMIN D [Concomitant]
     Route: 048
     Dates: start: 19950101
  14. ASCORBIC ACID (+) COLLAGEN [Concomitant]
     Route: 048
     Dates: start: 19950101, end: 20090101
  15. CALCIUM CITRATE [Concomitant]
     Route: 048
     Dates: start: 19950101, end: 20090101
  16. DYAZIDE [Concomitant]
     Indication: HYPERTENSION
     Route: 048
     Dates: start: 20000101
  17. CHONDROITIN SULFATE SODIUM (+) GLUCOSAMINE SULFATE [Concomitant]
     Route: 048
     Dates: start: 19950101, end: 20090101
  18. THERAPY UNSPECIFIED [Concomitant]
     Route: 048
     Dates: start: 19950101, end: 20090101
  19. FOSAMAX PLUS D [Suspect]
     Indication: OSTEOPENIA
     Dosage: 70MG/5600
     Route: 048
     Dates: start: 20050401, end: 20091101
  20. CALCIUM (UNSPECIFIED) [Concomitant]
     Route: 048
     Dates: start: 19950101, end: 20090101
  21. STANDARD PROCESS LIGAPLEX II [Concomitant]
     Route: 048
     Dates: start: 19950101, end: 20090101

REACTIONS (33)
  - DEVICE FAILURE [None]
  - FEMUR FRACTURE [None]
  - RIB FRACTURE [None]
  - OSTEOARTHRITIS [None]
  - OSTEOPOROSIS [None]
  - BONE MARROW DONATION [None]
  - OPEN REDUCTION OF FRACTURE [None]
  - INTRADUCTAL PAPILLOMA OF BREAST [None]
  - BURSITIS [None]
  - LUNG NEOPLASM [None]
  - NEUROPATHY PERIPHERAL [None]
  - STEM CELL TRANSPLANT [None]
  - BIOPSY CERVIX [None]
  - GASTROOESOPHAGEAL REFLUX DISEASE [None]
  - UTERINE LEIOMYOMA [None]
  - BIOPSY BREAST [None]
  - FRACTURE NONUNION [None]
  - NON-HODGKIN'S LYMPHOMA [None]
  - VITAMIN D DEFICIENCY [None]
  - CERVICAL DYSPLASIA [None]
  - OVARIAN CYST [None]
  - METAPLASIA [None]
  - FALL [None]
  - BREAST FIBROSIS [None]
  - MENISCUS LESION [None]
  - CONSTIPATION [None]
  - ANGIOPATHY [None]
  - REFLUX LARYNGITIS [None]
  - DRUG INEFFECTIVE [None]
  - ARTHRALGIA [None]
  - OSTEOPETROSIS [None]
  - RESTLESS LEGS SYNDROME [None]
  - PATELLOFEMORAL PAIN SYNDROME [None]
